FAERS Safety Report 5464676-2 (Version None)
Quarter: 2007Q3

REPORT INFORMATION
  Report Type: 
  Country: None (occurrence: None)
  Receive Date: 20070921
  Receipt Date: 20070912
  Transmission Date: 20080115
  Serious: Yes (Other)
  Sender: FDA-Public Use
  Company Number: US-PFIZER INC-2004029622

PATIENT
  Sex: Male
  Weight: 83.5 kg

DRUGS (14)
  1. DILANTIN [Suspect]
     Indication: CONVULSION
     Dosage: DAILY DOSE:300MG
     Route: 048
  2. PHENYTOIN [Suspect]
     Indication: EPILEPSY
     Dosage: DAILY DOSE:500MG
     Route: 065
  3. RITALIN [Suspect]
     Indication: MEMORY IMPAIRMENT
     Dosage: TEXT:UNKNOWN
     Route: 048
  4. ANTIEPILEPTICS [Suspect]
     Indication: EPILEPSY
  5. NEURONTIN [Concomitant]
     Route: 048
  6. KLONOPIN [Concomitant]
     Route: 065
  7. BUSPAR [Concomitant]
     Route: 065
  8. FLOMAX [Concomitant]
     Route: 065
  9. VASOTEC [Concomitant]
     Route: 065
  10. YOHIMBINE [Concomitant]
     Route: 065
  11. FIORICET [Concomitant]
     Route: 065
  12. ARICEPT [Concomitant]
     Route: 048
  13. LOMOTIL [Concomitant]
     Route: 065
  14. VIOXX [Concomitant]
     Route: 048

REACTIONS (11)
  - ANTICONVULSANT DRUG LEVEL DECREASED [None]
  - ANTICONVULSANT DRUG LEVEL INCREASED [None]
  - CONVULSION [None]
  - DEPRESSION [None]
  - DRUG EFFECT DECREASED [None]
  - EPILEPSY [None]
  - FATIGUE [None]
  - GASTROINTESTINAL DISORDER [None]
  - MEMORY IMPAIRMENT [None]
  - NERVOUSNESS [None]
  - RASH [None]
